FAERS Safety Report 14207065 (Version 1)
Quarter: 2017Q4

REPORT INFORMATION
  Report Type: Spontaneous
  Country: US (occurrence: US)
  Receive Date: 20171121
  Receipt Date: 20171121
  Transmission Date: 20180321
  Serious: Yes (Other)
  Sender: FDA-Public Use
  Company Number: US-PURDUE-USA-2017-0141648

PATIENT
  Age: 62 Year
  Sex: Female

DRUGS (7)
  1. OXYCODONE HYDROCHLORIDE (SIMILAR TO NDA 22-272) [Suspect]
     Active Substance: OXYCODONE HYDROCHLORIDE
     Dosage: (1.5- 2 X 30 MG) 45-60 MG, DAILY
     Route: 048
  2. LOSARTAN. [Concomitant]
     Active Substance: LOSARTAN
     Indication: HYPERTENSION
     Dosage: 100 MG, DAILY
     Route: 048
  3. APIXABAN [Concomitant]
     Active Substance: APIXABAN
     Indication: THROMBOSIS
     Dosage: 5 MG, BID
     Route: 048
     Dates: start: 2017
  4. PRAVASTATIN. [Concomitant]
     Active Substance: PRAVASTATIN
     Indication: BLOOD CHOLESTEROL INCREASED
     Dosage: 20 MG, DAILY
     Route: 048
     Dates: start: 2015
  5. SUTENT [Suspect]
     Active Substance: SUNITINIB MALATE
     Indication: GASTRIC CANCER
     Dosage: 37.5 MG, DAILY
     Route: 048
     Dates: start: 201709, end: 20171012
  6. OXYCODONE HYDROCHLORIDE (SIMILAR TO NDA 22-272) [Suspect]
     Active Substance: OXYCODONE HYDROCHLORIDE
     Indication: ABDOMINAL PAIN UPPER
     Dosage: (0.5 X 30 MG) 15 MG, Q6H PRN
     Route: 048
  7. AMLODIPINE [Concomitant]
     Active Substance: AMLODIPINE BESYLATE
     Indication: HYPERTENSION
     Dosage: 10 MG, DAILY
     Route: 048
     Dates: start: 2015

REACTIONS (8)
  - Constipation [Unknown]
  - Dizziness [Unknown]
  - Dyspnoea [Not Recovered/Not Resolved]
  - Asthenia [Unknown]
  - Neoplasm progression [Not Recovered/Not Resolved]
  - Aphthous ulcer [Recovered/Resolved]
  - Unevaluable event [Unknown]
  - Inadequate analgesia [Not Recovered/Not Resolved]

NARRATIVE: CASE EVENT DATE: 201710
